FAERS Safety Report 24268615 (Version 1)
Quarter: 2024Q3

REPORT INFORMATION
  Report Type: Spontaneous
  Country: US (occurrence: US)
  Receive Date: 20240830
  Receipt Date: 20240830
  Transmission Date: 20241016
  Serious: Yes (Other)
  Sender: APOTEX
  Company Number: US-APOTEX-2024AP010050

PATIENT
  Age: 55 Year
  Sex: Female

DRUGS (4)
  1. OMEPRAZOLE [Suspect]
     Active Substance: OMEPRAZOLE
     Indication: Product used for unknown indication
     Dosage: UNK
     Route: 065
  2. PEMBROLIZUMAB [Suspect]
     Active Substance: PEMBROLIZUMAB
     Indication: Endometrial adenocarcinoma
     Dosage: UNK
     Route: 065
  3. LENVIMA [Suspect]
     Active Substance: LENVATINIB
     Indication: Endometrial adenocarcinoma
     Dosage: UNK
     Route: 065
  4. ASPIRIN [Suspect]
     Active Substance: ASPIRIN
     Indication: Product used for unknown indication
     Dosage: UNK
     Route: 065

REACTIONS (5)
  - Renal tubular injury [Recovered/Resolved]
  - Renal tubular necrosis [Recovered/Resolved]
  - Acute kidney injury [Recovered/Resolved]
  - Focal segmental glomerulosclerosis [Recovered/Resolved]
  - Proteinuria [Recovered/Resolved]
